FAERS Safety Report 8024158-0 (Version None)
Quarter: 2012Q1

REPORT INFORMATION
  Report Type: 
  Country: None (occurrence: None)
  Receive Date: 20120105
  Receipt Date: 20120102
  Transmission Date: 20120608
  Serious: No
  Sender: FDA-Public Use
  Company Number: US-B.I. PHARMACEUTICALS,INC./RIDGEFIELD-2011-BP-24974BP

PATIENT
  Sex: Female

DRUGS (5)
  1. VENTOLIN [Concomitant]
  2. XANAX [Concomitant]
     Indication: ANXIETY
     Dosage: 1 MG
     Route: 048
     Dates: start: 20091001
  3. EYE DROPS [Concomitant]
     Indication: DRY EYE
     Route: 047
  4. SPIRIVA [Suspect]
     Indication: CHRONIC OBSTRUCTIVE PULMONARY DISEASE
     Dosage: 18 MCG
     Route: 055
     Dates: start: 20101001
  5. LEVOTHYROXINE SODIUM [Concomitant]
     Indication: HYPOTHYROIDISM
     Dosage: 50 MG
     Route: 048
     Dates: start: 20111001

REACTIONS (3)
  - DRY EYE [None]
  - NASAL DRYNESS [None]
  - NASAL DISCOMFORT [None]
